FAERS Safety Report 5506645-X (Version None)
Quarter: 2007Q4

REPORT INFORMATION
  Report Type: 
  Country: None (occurrence: None)
  Receive Date: 20071101
  Receipt Date: 20071012
  Transmission Date: 20080405
  Serious: Yes (Other)
  Sender: FDA-Public Use
  Company Number: US-1164463

PATIENT
  Sex: Female

DRUGS (1)
  1. NEVANAC [Suspect]
     Dosage: OPHTHALMIC
     Route: 047

REACTIONS (2)
  - ULCERATIVE KERATITIS [None]
  - WRONG TECHNIQUE IN DRUG USAGE PROCESS [None]
